FAERS Safety Report 11023084 (Version 2)
Quarter: 2015Q2

REPORT INFORMATION
  Report Type: Spontaneous
  Country: GB (occurrence: GB)
  Receive Date: 20150413
  Receipt Date: 20150420
  Transmission Date: 20150821
  Serious: Yes (Other)
  Sender: FDA-Public Use
  Company Number: GB-ROCHE-1562839

PATIENT
  Age: 43 Year
  Sex: Female
  Weight: 60.3 kg

DRUGS (2)
  1. HERCEPTIN [Suspect]
     Active Substance: TRASTUZUMAB
     Indication: ADJUVANT THERAPY
     Dosage: MOST RECENT DOSE PRIOR TO SAE ON: 07/APR/2015, 9TH CYCLE
     Route: 058
  2. TAMOXIFEN [Concomitant]
     Active Substance: TAMOXIFEN
     Route: 048
     Dates: start: 201407

REACTIONS (4)
  - Paralysis [Unknown]
  - Gait disturbance [Unknown]
  - Fibrin D dimer increased [Unknown]
  - Myalgia [Unknown]

NARRATIVE: CASE EVENT DATE: 20150407
